FAERS Safety Report 16562681 (Version 2)
Quarter: 2019Q3

REPORT INFORMATION
  Report Type: Spontaneous
  Country: CZ (occurrence: CZ)
  Receive Date: 20190711
  Receipt Date: 20190730
  Transmission Date: 20191004
  Serious: Yes (Death, Other)
  Sender: FDA-Public Use
  Company Number: CZ-SHIRE-CZ201921611

PATIENT

DRUGS (19)
  1. EVEROLIMUS. [Concomitant]
     Active Substance: EVEROLIMUS
     Indication: PRODUCT USED FOR UNKNOWN INDICATION
  2. FLUCONAZOLE. [Concomitant]
     Active Substance: FLUCONAZOLE
     Indication: PRODUCT USED FOR UNKNOWN INDICATION
  3. CABOZANTINIB [Concomitant]
     Active Substance: CABOZANTINIB
     Indication: PRODUCT USED FOR UNKNOWN INDICATION
  4. CLARITHROMYCIN. [Concomitant]
     Active Substance: CLARITHROMYCIN
     Indication: BRONCHITIS
  5. METHYLPREDNISOLONE. [Concomitant]
     Active Substance: METHYLPREDNISOLONE
     Indication: GUILLAIN-BARRE SYNDROME
  6. HUMAN NORMAL IMMUNOGLOBULIN [Suspect]
     Active Substance: HUMAN IMMUNOGLOBULIN G
     Indication: GUILLAIN-BARRE SYNDROME
     Dosage: UNK
     Route: 065
     Dates: start: 20181214
  7. CEFUROXIME. [Concomitant]
     Active Substance: CEFUROXIME
     Indication: PRODUCT USED FOR UNKNOWN INDICATION
  8. ISOPRENALINE [Concomitant]
     Active Substance: ISOPROTERENOL HYDROCHLORIDE
     Indication: HYPOTENSION
  9. LENVATINIB [Concomitant]
     Active Substance: LENVATINIB
     Indication: PRODUCT USED FOR UNKNOWN INDICATION
  10. PEMBROLIZUMAB. [Concomitant]
     Active Substance: PEMBROLIZUMAB
     Indication: PRODUCT USED FOR UNKNOWN INDICATION
  11. HUMAN ALBUMIN [Concomitant]
     Active Substance: ALBUMIN HUMAN
     Indication: PRODUCT USED FOR UNKNOWN INDICATION
  12. INFLIXIMAB [Concomitant]
     Active Substance: INFLIXIMAB
     Indication: GUILLAIN-BARRE SYNDROME
  13. ISOPRENALINE [Concomitant]
     Active Substance: ISOPROTERENOL HYDROCHLORIDE
     Indication: BRADYCARDIA
  14. NIVOLUMAB [Suspect]
     Active Substance: NIVOLUMAB
     Indication: METASTATIC RENAL CELL CARCINOMA
     Dosage: UNK
     Route: 065
     Dates: start: 20181129
  15. PLACEBO FOR MADCAM [Concomitant]
     Indication: METASTATIC RENAL CELL CARCINOMA
  16. SOLU-MEDROL [Suspect]
     Active Substance: METHYLPREDNISOLONE SODIUM SUCCINATE
     Indication: GUILLAIN-BARRE SYNDROME
     Route: 065
  17. ATEZOLIZUMAB. [Concomitant]
     Active Substance: ATEZOLIZUMAB
     Indication: METASTATIC RENAL CELL CARCINOMA
  18. SUNITINIB [Concomitant]
     Active Substance: SUNITINIB
     Indication: PRODUCT USED FOR UNKNOWN INDICATION
  19. SUMETROLIM [Concomitant]
     Active Substance: SULFAMETHOXAZOLE\TRIMETHOPRIM
     Indication: PRODUCT USED FOR UNKNOWN INDICATION

REACTIONS (2)
  - Guillain-Barre syndrome [Fatal]
  - Drug ineffective [Unknown]
